FAERS Safety Report 17744733 (Version 9)
Quarter: 2025Q3

REPORT INFORMATION
  Report Type: Spontaneous
  Country: US (occurrence: US)
  Receive Date: 20200505
  Receipt Date: 20250917
  Transmission Date: 20251020
  Serious: Yes (Other)
  Sender: PFIZER
  Company Number: US-PFIZER INC-2020179131

PATIENT
  Age: 65 Year
  Sex: Female

DRUGS (1)
  1. XELJANZ XR [Suspect]
     Active Substance: TOFACITINIB CITRATE
     Indication: Arthritis
     Dosage: 11 MG, 1X/DAY

REACTIONS (10)
  - Diabetes mellitus [Unknown]
  - Multiple sclerosis [Unknown]
  - Contraindicated product prescribed [Unknown]
  - Heart rate increased [Unknown]
  - Lipids increased [Unknown]
  - Pain [Unknown]
  - Illness [Unknown]
  - Asthma [Recovering/Resolving]
  - Anaemia [Unknown]
  - Lung disorder [Not Recovered/Not Resolved]
